FAERS Safety Report 24980788 (Version 1)
Quarter: 2025Q1

REPORT INFORMATION
  Report Type: Spontaneous
  Country: US (occurrence: None)
  Receive Date: 20250215
  Receipt Date: 20250215
  Transmission Date: 20250409
  Serious: Yes (Life-Threatening)
  Sender: FDA-CTU
  Company Number: None

PATIENT
  Age: 40 Year
  Sex: Male
  Weight: 67.5 kg

DRUGS (3)
  1. CABOTEGRAVIR [Suspect]
     Active Substance: CABOTEGRAVIR
     Indication: Prophylaxis against HIV infection
     Route: 030
  2. CABOTEGRAVIR [Concomitant]
     Active Substance: CABOTEGRAVIR
  3. DOXYCYCLINE [Concomitant]
     Active Substance: DOXYCYCLINE

REACTIONS (11)
  - Adverse drug reaction [None]
  - Post procedural complication [None]
  - Injection site inflammation [None]
  - Injection site pain [None]
  - Injection site warmth [None]
  - Hypokinesia [None]
  - Myalgia [None]
  - Pain [None]
  - Chills [None]
  - Pyrexia [None]
  - Lack of injection site rotation [None]

NARRATIVE: CASE EVENT DATE: 20241130
